FAERS Safety Report 6477752-2 (Version None)
Quarter: 2009Q4

REPORT INFORMATION
  Report Type: 
  Country: None (occurrence: None)
  Receive Date: 20091203
  Receipt Date: 20091203
  Transmission Date: 20100525
  Serious: Yes (Death)
  Sender: FDA-Public Use
  Company Number: None

PATIENT
  Age: 56 Year
  Sex: Male
  Weight: 113.3993 kg

DRUGS (9)
  1. PLAVIX [Suspect]
     Indication: PROPHYLAXIS
     Dosage: 1 TAB DAILY PO
     Route: 048
  2. PLAVIX [Suspect]
     Indication: THROMBOSIS IN DEVICE
     Dosage: 1 TAB DAILY PO
     Route: 048
  3. HYDROCORTISONE [Concomitant]
  4. FLORINEF [Concomitant]
  5. ZYRTEC [Concomitant]
  6. AVAPRO [Concomitant]
  7. PRILOSEC [Concomitant]
  8. NIASPAN [Concomitant]
  9. ASPIRIN [Concomitant]

REACTIONS (2)
  - CARDIOGENIC SHOCK [None]
  - HAEMORRHAGE [None]
